FAERS Safety Report 4377028-3 (Version None)
Quarter: 2004Q2

REPORT INFORMATION
  Report Type: 
  Country: None (occurrence: None)
  Receive Date: 20040614
  Receipt Date: 20040521
  Transmission Date: 20050107
  Serious: Yes (Hospitalization)
  Sender: FDA-Public Use
  Company Number: CN-GLAXOSMITHKLINE-B0333902A

PATIENT
  Age: 59 Year
  Sex: Male
  Weight: 80 kg

DRUGS (5)
  1. AVANDIA [Suspect]
     Indication: INSULIN RESISTANCE
     Route: 048
     Dates: start: 20040105, end: 20040424
  2. METFORMIN HCL [Concomitant]
     Indication: INSULIN RESISTANCE
     Dosage: 250MG THREE TIMES PER DAY
     Route: 048
     Dates: start: 19980305, end: 20040423
  3. DIAMICRON [Concomitant]
     Indication: INSULIN RESISTANCE
     Dosage: 40MG TWICE PER DAY
     Route: 048
     Dates: start: 19980305, end: 20040423
  4. NIFEDIPINE [Concomitant]
     Dosage: 10MG TWICE PER DAY
     Route: 048
     Dates: start: 19980401
  5. LIPANTHYL [Concomitant]
     Dosage: .2UNIT PER DAY
     Route: 048
     Dates: start: 19980101

REACTIONS (7)
  - ANAEMIA [None]
  - ANOREXIA [None]
  - ASTHENIA [None]
  - BLOOD CREATININE INCREASED [None]
  - DISCOMFORT [None]
  - PAIN [None]
  - SOMNOLENCE [None]
